FAERS Safety Report 9107023 (Version 1)
Quarter: 2013Q1

REPORT INFORMATION
  Report Type: Spontaneous
  Country: JP (occurrence: JP)
  Receive Date: 20130221
  Receipt Date: 20130221
  Transmission Date: 20140127
  Serious: Yes (Hospitalization)
  Sender: FDA-Public Use
  Company Number: JP-ASTRAZENECA-2013SE07862

PATIENT
  Age: 90 Year
  Sex: Male

DRUGS (1)
  1. NEXIUM [Suspect]
     Dosage: DOSE UNKNOWN
     Route: 048
     Dates: end: 201301

REACTIONS (1)
  - Renal failure acute [Not Recovered/Not Resolved]
